FAERS Safety Report 5164257-4 (Version None)
Quarter: 2006Q4

REPORT INFORMATION
  Report Type: 
  Country: None (occurrence: None)
  Receive Date: 20060918
  Receipt Date: 20051229
  Transmission Date: 20070319
  Serious: Yes (Other)
  Sender: FDA-Public Use
  Company Number: US-JNJFOC-20051001538

PATIENT
  Age: 19 Year
  Sex: Female
  Weight: 128.368 kg

DRUGS (1)
  1. TOPAMAX [Suspect]
     Indication: BINGE EATING
     Dosage: 200 MG, 1 IN 1 DAY, ORAL
     Route: 048
     Dates: start: 20040101

REACTIONS (4)
  - FATIGUE [None]
  - PARAESTHESIA [None]
  - THERAPEUTIC RESPONSE UNEXPECTED [None]
  - WEIGHT DECREASED [None]
